FAERS Safety Report 10264421 (Version 1)
Quarter: 2014Q2

REPORT INFORMATION
  Report Type: Spontaneous
  Country: US (occurrence: US)
  Receive Date: 20140627
  Receipt Date: 20140627
  Transmission Date: 20141212
  Serious: No
  Sender: FDA-Public Use
  Company Number: US-ELI_LILLY_AND_COMPANY-US201406005151

PATIENT
  Age: 60 Year
  Sex: Female
  Weight: 50.34 kg

DRUGS (3)
  1. ADCIRCA [Suspect]
     Indication: PRODUCT USED FOR UNKNOWN INDICATION
     Dosage: 20 MG, UNK
     Route: 065
  2. ADCIRCA [Suspect]
     Dosage: 40 MG, UNK
     Route: 065
     Dates: start: 20140428
  3. TYVASO [Suspect]
     Indication: PULMONARY ARTERIAL HYPERTENSION
     Dosage: UNK, QID
     Route: 055
     Dates: start: 20140417

REACTIONS (1)
  - Vision blurred [Unknown]
